FAERS Safety Report 8403440-9 (Version None)
Quarter: 2012Q2

REPORT INFORMATION
  Report Type: 
  Country: None (occurrence: None)
  Receive Date: 20120601
  Receipt Date: 20120522
  Transmission Date: 20120825
  Serious: Yes (Hospitalization, Disabling)
  Sender: FDA-Public Use
  Company Number: US-JNJFOC-20120518909

PATIENT
  Sex: Female
  Weight: 39.1 kg

DRUGS (5)
  1. MESALAMINE [Concomitant]
     Route: 048
     Dates: end: 20110101
  2. PREDNISONE TAB [Concomitant]
  3. AZATHIOPRINE [Concomitant]
  4. REMICADE [Suspect]
     Indication: CROHN'S DISEASE
     Route: 042
     Dates: end: 20101001
  5. PRED FORTE [Concomitant]

REACTIONS (1)
  - CROHN'S DISEASE [None]
